FAERS Safety Report 21774010 (Version 2)
Quarter: 2022Q4

REPORT INFORMATION
  Report Type: Other
  Country: FR (occurrence: FR)
  Receive Date: 20221223
  Receipt Date: 20221223
  Transmission Date: 20230113
  Serious: Yes (Death, Congenital Anomaly)
  Sender: FDA-Public Use
  Company Number: FR-PHARMAAND-2022PHR00272

PATIENT
  Sex: Male
  Weight: .35 kg

DRUGS (2)
  1. PEGINTERFERON ALFA-2A [Suspect]
     Active Substance: PEGINTERFERON ALFA-2A
     Indication: Essential thrombocythaemia
     Dosage: 1 DOSAGE FORM, 1X/WEEK
     Route: 064
     Dates: start: 20210923, end: 20220315
  2. INNOHEP [Suspect]
     Active Substance: TINZAPARIN SODIUM
     Indication: Essential thrombocythaemia
     Dosage: 1 DOSAGE FORM, 1X/DAY
     Route: 064
     Dates: start: 20210923, end: 20220315

REACTIONS (6)
  - Pulmonary hypoplasia [Fatal]
  - Thymus hypoplasia [Fatal]
  - Foetal growth restriction [Fatal]
  - Vascular malformation [Fatal]
  - Dysmorphism [Fatal]
  - Foetal exposure during pregnancy [Fatal]

NARRATIVE: CASE EVENT DATE: 20220301
